FAERS Safety Report 7979785-3 (Version None)
Quarter: 2011Q4

REPORT INFORMATION
  Report Type: 
  Country: None (occurrence: None)
  Receive Date: 20111214
  Receipt Date: 20111208
  Transmission Date: 20120403
  Serious: Yes (Death)
  Sender: FDA-Public Use
  Company Number: GB-ROCHE-GNE305542

PATIENT
  Sex: Male

DRUGS (9)
  1. SYMBICORT [Concomitant]
  2. ALBUTEROL SULFATE AUTOHALER [Concomitant]
  3. BICALUTAMIDE [Concomitant]
  4. TIOTROPIUM [Concomitant]
  5. DIGOXIN [Concomitant]
  6. FLECAINIDE ACETATE [Concomitant]
  7. BENDROFLUMETHIAZIDE [Concomitant]
  8. LUCENTIS [Suspect]
     Indication: CHOROIDAL NEOVASCULARISATION
     Route: 050
     Dates: start: 20090706
  9. GOSERELIN [Concomitant]

REACTIONS (1)
  - DEATH [None]
